FAERS Safety Report 7428973-3 (Version None)
Quarter: 2011Q2

REPORT INFORMATION
  Report Type: 
  Country: None (occurrence: None)
  Receive Date: 20110418
  Receipt Date: 20110418
  Transmission Date: 20111010
  Serious: Yes (Hospitalization)
  Sender: FDA-Public Use
  Company Number: None

PATIENT
  Sex: Male
  Weight: 37 kg

DRUGS (3)
  1. METHOTREXATE [Suspect]
     Dosage: 180 MG
  2. MERCAPTOPURINE [Suspect]
     Dosage: 4875 MG
  3. VINCRISTINE SULFATE [Suspect]
     Dosage: 4.8 MG

REACTIONS (15)
  - HYPOGLYCAEMIA [None]
  - DISSEMINATED INTRAVASCULAR COAGULATION [None]
  - PUPILS UNEQUAL [None]
  - HAEMORRHAGE INTRACRANIAL [None]
  - HUMAN RHINOVIRUS TEST POSITIVE [None]
  - SEPTIC SHOCK [None]
  - ASCITES [None]
  - PUPILLARY REFLEX IMPAIRED [None]
  - BRAIN DEATH [None]
  - FEBRILE NEUTROPENIA [None]
  - RESPIROVIRUS TEST POSITIVE [None]
  - ABDOMINAL COMPARTMENT SYNDROME [None]
  - GENERAL PHYSICAL HEALTH DETERIORATION [None]
  - HYPOTENSION [None]
  - MULTI-ORGAN FAILURE [None]
